FAERS Safety Report 10385624 (Version 1)
Quarter: 2014Q3

REPORT INFORMATION
  Report Type: Spontaneous
  Country: US (occurrence: US)
  Receive Date: 20140814
  Receipt Date: 20140814
  Transmission Date: 20150326
  Serious: Yes (Other)
  Sender: FDA-Public Use
  Company Number: US-MALLINCKRODT-T201403037

PATIENT
  Sex: Female

DRUGS (1)
  1. GABLOFEN [Suspect]
     Active Substance: BACLOFEN
     Indication: MUSCLE SPASTICITY
     Dosage: 90 MCG/DAY
     Route: 037

REACTIONS (3)
  - Cerebrospinal fluid leakage [Recovered/Resolved]
  - Pseudomeningocele [Unknown]
  - Muscle spasticity [Unknown]
